FAERS Safety Report 9749896 (Version 1)
Quarter: 2013Q4

REPORT INFORMATION
  Report Type: Spontaneous
  Country: IE (occurrence: IE)
  Receive Date: 20131212
  Receipt Date: 20131212
  Transmission Date: 20140711
  Serious: Yes (Life-Threatening)
  Sender: FDA-Public Use
  Company Number: IE-PFIZER INC-2013354731

PATIENT
  Age: 60 Year
  Sex: Male

DRUGS (1)
  1. CARDURA [Suspect]
     Dosage: 5 MG, UNK
     Route: 048
     Dates: start: 2002

REACTIONS (1)
  - Loss of consciousness [Unknown]
